FAERS Safety Report 7898502-9 (Version None)
Quarter: 2011Q4

REPORT INFORMATION
  Report Type: 
  Country: None (occurrence: None)
  Receive Date: 20111107
  Receipt Date: 20111025
  Transmission Date: 20120403
  Serious: Yes (Hospitalization, Other)
  Sender: FDA-Public Use
  Company Number: CA-JNJFOC-20111013059

PATIENT
  Sex: Female
  Weight: 51 kg

DRUGS (3)
  1. REMICADE [Suspect]
     Route: 042
     Dates: start: 20111025
  2. REMICADE [Suspect]
     Indication: COLITIS ULCERATIVE
     Route: 042
     Dates: start: 20110719
  3. IMURAN [Concomitant]

REACTIONS (6)
  - INFUSION RELATED REACTION [None]
  - HAEMOGLOBIN DECREASED [None]
  - DYSPHONIA [None]
  - FLUSHING [None]
  - HYPERTENSION [None]
  - LIP SWELLING [None]
